FAERS Safety Report 5734947-0 (Version None)
Quarter: 2008Q2

REPORT INFORMATION
  Report Type: 
  Country: None (occurrence: None)
  Receive Date: 20080508
  Receipt Date: 20080508
  Transmission Date: 20081010
  Serious: Yes (Life-Threatening, Hospitalization, Disabling, Other)
  Sender: FDA-Public Use
  Company Number: None

PATIENT
  Age: 74 Year
  Sex: Male
  Weight: 81.6475 kg

DRUGS (1)
  1. DIGOXIN [Suspect]
     Dosage: 1 TABLET BY MOUTH EVERY DAY
     Dates: start: 20080226, end: 20080314

REACTIONS (6)
  - DISORIENTATION [None]
  - DYSPNOEA [None]
  - HAEMORRHAGE [None]
  - HEART RATE DECREASED [None]
  - NAUSEA [None]
  - RENAL FAILURE ACUTE [None]
